FAERS Safety Report 14187517 (Version 1)
Quarter: 2017Q4

REPORT INFORMATION
  Report Type: Spontaneous
  Country: US (occurrence: US)
  Receive Date: 20171114
  Receipt Date: 20171114
  Transmission Date: 20180321
  Serious: No
  Sender: FDA-Public Use
  Company Number: US-ASTRAZENECA-2017SF10882

PATIENT
  Age: 48 Year
  Sex: Female
  Weight: 68 kg

DRUGS (9)
  1. LORAZEPAM. [Concomitant]
     Active Substance: LORAZEPAM
     Indication: SLEEP DISORDER
     Route: 048
  2. CYMBALTA [Concomitant]
     Active Substance: DULOXETINE HYDROCHLORIDE
     Route: 048
  3. INFLUENZA VACCINE [Concomitant]
     Active Substance: INFLUENZA VIRUS VACCINE
     Dates: start: 20161022
  4. NEXIUM [Suspect]
     Active Substance: ESOMEPRAZOLE MAGNESIUM
     Indication: GASTROOESOPHAGEAL REFLUX DISEASE
     Route: 048
  5. CYMBALTA [Concomitant]
     Active Substance: DULOXETINE HYDROCHLORIDE
     Route: 048
  6. CYMBALTA [Concomitant]
     Active Substance: DULOXETINE HYDROCHLORIDE
     Route: 048
  7. AMBIEN [Concomitant]
     Active Substance: ZOLPIDEM TARTRATE
     Indication: SLEEP DISORDER
     Dosage: UNKNOWN
     Route: 065
  8. NEXIUM [Suspect]
     Active Substance: ESOMEPRAZOLE MAGNESIUM
     Indication: GASTROOESOPHAGEAL REFLUX DISEASE
     Route: 048
  9. CYMBALTA [Concomitant]
     Active Substance: DULOXETINE HYDROCHLORIDE
     Route: 048

REACTIONS (20)
  - Middle ear effusion [Unknown]
  - Hepatic lesion [Unknown]
  - Respiration abnormal [Unknown]
  - Pollakiuria [Unknown]
  - Fall [Unknown]
  - Arthropathy [Unknown]
  - Meniscus injury [Unknown]
  - Dry mouth [Unknown]
  - Cough [Not Recovered/Not Resolved]
  - Chronic sinusitis [Unknown]
  - Fatigue [Unknown]
  - Lymphadenopathy [Unknown]
  - Oropharyngeal pain [Not Recovered/Not Resolved]
  - Eating disorder [Recovered/Resolved]
  - Pain [Unknown]
  - Sinusitis [Not Recovered/Not Resolved]
  - Eustachian tube disorder [Not Recovered/Not Resolved]
  - Tinnitus [Unknown]
  - Sinus disorder [Unknown]
  - Oral disorder [Recovered/Resolved]

NARRATIVE: CASE EVENT DATE: 2002
